FAERS Safety Report 9556178 (Version 1)
Quarter: 2013Q3

REPORT INFORMATION
  Report Type: Spontaneous
  Country: US (occurrence: None)
  Receive Date: 20130906
  Receipt Date: 20130906
  Transmission Date: 20140515
  Serious: Yes (Hospitalization)
  Sender: FDA-Public Use
  Company Number: 163-POMAL-13063282

PATIENT
  Age: 71 Year
  Sex: Male
  Weight: 79.7 kg

DRUGS (16)
  1. POMALYST [Suspect]
     Indication: PLASMA CELL MYELOMA
     Route: 048
     Dates: start: 20130602, end: 20130617
  2. DOCUSATE [Concomitant]
  3. FOLIC ACID [Concomitant]
  4. HYDROMORPHONE [Concomitant]
  5. INSULIN ASPARATE (INSULIN ASPART) [Concomitant]
  6. GLARGINE (INSULINE GLARGINE) [Concomitant]
  7. LANSOPRAZOLE [Concomitant]
  8. LIDOCAINE [Concomitant]
  9. LISINOPRIL [Concomitant]
  10. METOPROLOL SUCCINATE [Concomitant]
  11. PREGABALIN [Concomitant]
  12. SENNA [Concomitant]
  13. SIMVASTATIN [Concomitant]
  14. TAMSULOSIN [Concomitant]
  15. TORSEMIDE [Concomitant]
  16. HEPARIN [Concomitant]

REACTIONS (2)
  - Musculoskeletal pain [None]
  - Neutrophil count decreased [None]
